FAERS Safety Report 15532844 (Version 1)
Quarter: 2018Q4

REPORT INFORMATION
  Report Type: Spontaneous
  Country: RO (occurrence: RO)
  Receive Date: 20181019
  Receipt Date: 20181019
  Transmission Date: 20190205
  Serious: Yes (Other)
  Sender: FDA-Public Use
  Company Number: PHHY2018RO129688

PATIENT
  Age: 45 Year
  Sex: Male

DRUGS (3)
  1. DAIVOBET [Concomitant]
     Active Substance: BETAMETHASONE DIPROPIONATE\CALCIPOTRIENE
     Indication: PRODUCT USED FOR UNKNOWN INDICATION
     Dosage: 4 OT, QMO
     Route: 061
  2. METHOTREXATE. [Suspect]
     Active Substance: METHOTREXATE
     Indication: PSORIASIS
     Dosage: 1 OT, QW
     Route: 051
     Dates: start: 201803
  3. HUMIRA [Suspect]
     Active Substance: ADALIMUMAB
     Indication: PSORIASIS
     Dosage: 40 MG, UNK (14 DAY)
     Route: 058
     Dates: start: 20170315, end: 201803

REACTIONS (3)
  - Blood pressure increased [Not Recovered/Not Resolved]
  - Psoriasis [Not Recovered/Not Resolved]
  - Skin test positive [Not Recovered/Not Resolved]

NARRATIVE: CASE EVENT DATE: 201803
